FAERS Safety Report 11942775 (Version 1)
Quarter: 2016Q1

REPORT INFORMATION
  Report Type: Spontaneous
  Country: US (occurrence: US)
  Receive Date: 20160125
  Receipt Date: 20160125
  Transmission Date: 20160526
  Serious: No
  Sender: FDA-Public Use
  Company Number: US-UNITED THERAPEUTICS-UNT-2015-007270

PATIENT
  Age: 54 Year
  Sex: Male
  Weight: 136.5 kg

DRUGS (2)
  1. REMODULIN [Suspect]
     Active Substance: TREPROSTINIL
     Indication: PULMONARY ARTERIAL HYPERTENSION
     Dosage: 0.063 ?G/KG/MIN, CONTINUING
     Route: 041
     Dates: start: 20140926
  2. ADCIRCA [Concomitant]
     Active Substance: TADALAFIL
     Indication: PRODUCT USED FOR UNKNOWN INDICATION

REACTIONS (8)
  - Pain in extremity [Unknown]
  - Headache [Unknown]
  - Flushing [Unknown]
  - Overdose [Unknown]
  - Device issue [Unknown]
  - Nervousness [Unknown]
  - Injection site haemorrhage [Recovered/Resolved]
  - Thrombosis in device [Unknown]

NARRATIVE: CASE EVENT DATE: 201508
